FAERS Safety Report 24445129 (Version 1)
Quarter: 2024Q4

REPORT INFORMATION
  Report Type: Spontaneous
  Country: US (occurrence: None)
  Receive Date: 20241015
  Receipt Date: 20241015
  Transmission Date: 20250114
  Serious: Yes (Hospitalization, Other)
  Sender: Public
  Company Number: None

PATIENT
  Age: 14 Year
  Sex: Male
  Weight: 64.6 kg

DRUGS (1)
  1. ISOTRETINOIN [Suspect]
     Active Substance: ISOTRETINOIN
     Indication: Acne
     Dates: start: 20240418, end: 20241007

REACTIONS (4)
  - Social avoidant behaviour [None]
  - Mood altered [None]
  - Paranoia [None]
  - Dysphoria [None]

NARRATIVE: CASE EVENT DATE: 20241015
